FAERS Safety Report 4444355-0 (Version None)
Quarter: 2004Q3

REPORT INFORMATION
  Report Type: 
  Country: None (occurrence: None)
  Receive Date: 20040730
  Receipt Date: 20031027
  Transmission Date: 20050211
  Serious: Yes (Hospitalization)
  Sender: FDA-Public Use
  Company Number: 03P-163-0224490-00

PATIENT
  Age: 41 Year
  Sex: Male
  Weight: 61.2356 kg

DRUGS (12)
  1. NORVIR [Suspect]
     Dosage: 200 MG
     Dates: start: 20010625, end: 20030623
  2. RO-29-9800 (T-20 FUSION INHIBITOR) [Suspect]
     Dosage: 90 MG, 2 IN 1 D, SUBCUTANEOUS
     Route: 058
     Dates: start: 20010625
  3. LAMIVUDINE [Suspect]
     Dosage: 300 MG
     Dates: start: 20011124
  4. VIREAD [Suspect]
     Dosage: 300 MG
     Dates: start: 20011124
  5. STAVUDINE [Suspect]
     Dosage: 80 MG
     Dates: start: 20010625
  6. EFAVIRENZ [Suspect]
     Dosage: 600 MG
     Dates: start: 20010625
  7. SAQUINAVIR MESILATE [Suspect]
     Dosage: 2000 MG
     Dates: start: 20010625, end: 20030623
  8. LORAZEPAM [Concomitant]
  9. PRAVASTATIN SODIUM [Concomitant]
  10. OMEPRAZOLE [Concomitant]
  11. AMLODIPINE BESYLATE [Concomitant]
  12. FUZEON [Concomitant]

REACTIONS (1)
  - SYNCOPE [None]
